FAERS Safety Report 5688199-0 (Version None)
Quarter: 2008Q1

REPORT INFORMATION
  Report Type: 
  Country: None (occurrence: None)
  Receive Date: 20080327
  Receipt Date: 20080311
  Transmission Date: 20080703
  Serious: Yes (Hospitalization)
  Sender: FDA-Public Use
  Company Number: DSA_31600_2008

PATIENT
  Sex: Female

DRUGS (2)
  1. TAVOR            (TAVOR - LORAZEPAM) [Suspect]
     Dosage: 20 MG 1X . ORAL
     Route: 048
     Dates: start: 20080311, end: 20080311
  2. BROMAZEPAM                       (BROMAZEPAM) [Suspect]
     Dosage: 54 MG 1X. ORAL
     Route: 048
     Dates: start: 20080311, end: 20080311

REACTIONS (2)
  - INTENTIONAL OVERDOSE [None]
  - MYOCARDIAL INFARCTION [None]
